FAERS Safety Report 20603115 (Version 1)
Quarter: 2022Q1

REPORT INFORMATION
  Report Type: Spontaneous
  Country: CZ (occurrence: CZ)
  Receive Date: 20220316
  Receipt Date: 20220316
  Transmission Date: 20220424
  Serious: Yes (Other)
  Sender: FDA-Public Use
  Company Number: CZ-KOREA IPSEN Pharma-2022-06401

PATIENT
  Age: 39 Year
  Sex: Female

DRUGS (5)
  1. LANREOTIDE ACETATE [Suspect]
     Active Substance: LANREOTIDE ACETATE
     Indication: Neuroendocrine tumour of the lung
     Dosage: 120 MG EVERY 28 DAYS
     Route: 030
     Dates: start: 20190722, end: 20200915
  2. LANREOTIDE ACETATE [Suspect]
     Active Substance: LANREOTIDE ACETATE
     Indication: Off label use
  3. SERETIDE [Concomitant]
     Active Substance: FLUTICASONE PROPIONATE\SALMETEROL XINAFOATE
     Dosage: 500, 1-0-1
  4. LETROX 100 [Concomitant]
     Dosage: 100, 1-0-0
  5. AERIUS [Concomitant]
     Dosage: 1-0-0

REACTIONS (3)
  - Disease progression [Unknown]
  - Off label use [Unknown]
  - Incorrect route of product administration [Unknown]

NARRATIVE: CASE EVENT DATE: 20190722
